FAERS Safety Report 25676172 (Version 1)
Quarter: 2025Q3

REPORT INFORMATION
  Report Type: Spontaneous
  Country: US (occurrence: US)
  Receive Date: 20250813
  Receipt Date: 20250813
  Transmission Date: 20251020
  Serious: No
  Sender: ANI
  Company Number: US-ANIPHARMA-2024-US-067204

PATIENT
  Age: 66 Year

DRUGS (1)
  1. ANASTROZOLE [Suspect]
     Active Substance: ANASTROZOLE
     Indication: Invasive ductal breast carcinoma
     Dates: start: 202410, end: 202412

REACTIONS (4)
  - Sleep deficit [Unknown]
  - Arthralgia [Unknown]
  - Myalgia [Unknown]
  - Weight increased [Unknown]
